FAERS Safety Report 10539047 (Version 3)
Quarter: 2014Q4

REPORT INFORMATION
  Report Type: Report from Study
  Country: US (occurrence: US)
  Receive Date: 20141023
  Receipt Date: 20141114
  Transmission Date: 20150529
  Serious: Yes (Other)
  Sender: FDA-Public Use
  Company Number: US-ACTELION-A-NJ2014-107106

PATIENT
  Age: 43 Year
  Sex: Female

DRUGS (4)
  1. SILDENAFIL. [Concomitant]
     Active Substance: SILDENAFIL
  2. VENTAVIS [Suspect]
     Active Substance: ILOPROST
     Indication: PULMONARY ARTERIAL HYPERTENSION
     Dosage: 6 TIMES PER DAY
     Route: 055
     Dates: start: 20131219
  3. VENTAVIS [Suspect]
     Active Substance: ILOPROST
     Dosage: UNK
     Route: 055
  4. TRACLEER [Suspect]
     Active Substance: BOSENTAN\BOSENTAN MONOHYDRATE
     Indication: PULMONARY ARTERIAL HYPERTENSION
     Dosage: 125 MG, BID
     Route: 048
     Dates: start: 20100223

REACTIONS (7)
  - Chikungunya virus infection [Not Recovered/Not Resolved]
  - Vision blurred [Not Recovered/Not Resolved]
  - Intracranial pressure increased [Not Recovered/Not Resolved]
  - Exostosis [Unknown]
  - Brain neoplasm [Not Recovered/Not Resolved]
  - Headache [Not Recovered/Not Resolved]
  - Arthralgia [Not Recovered/Not Resolved]

NARRATIVE: CASE EVENT DATE: 20141001
